FAERS Safety Report 20238516 (Version 1)
Quarter: 2021Q4

REPORT INFORMATION
  Report Type: Spontaneous
  Country: US (occurrence: None)
  Receive Date: 20211227
  Receipt Date: 20211227
  Transmission Date: 20220303
  Serious: Yes (Hospitalization)
  Sender: FDA-Public Use
  Company Number: None

PATIENT
  Sex: Male

DRUGS (9)
  1. DALFAMPRIDINE [Suspect]
     Active Substance: DALFAMPRIDINE
     Indication: Multiple sclerosis
     Dosage: FREQUENCY : DAILY;?
     Route: 048
     Dates: start: 20181213
  2. ABILIFY [Concomitant]
     Active Substance: ARIPIPRAZOLE
  3. BUDEPRION XL [Concomitant]
     Active Substance: BUPROPION HYDROCHLORIDE
  4. CRESTOR [Concomitant]
     Active Substance: ROSUVASTATIN CALCIUM
  5. HALCION [Concomitant]
     Active Substance: TRIAZOLAM
  6. VITAMINS [Concomitant]
     Active Substance: VITAMINS
  7. VESICARE [Concomitant]
     Active Substance: SOLIFENACIN SUCCINATE
  8. WELLBUTRIN XL [Concomitant]
     Active Substance: BUPROPION HYDROCHLORIDE
  9. ZOLOFT [Concomitant]
     Active Substance: SERTRALINE HYDROCHLORIDE

REACTIONS (2)
  - Urinary tract infection [None]
  - Therapy interrupted [None]
